FAERS Safety Report 5643956-1 (Version None)
Quarter: 2008Q1

REPORT INFORMATION
  Report Type: 
  Country: None (occurrence: None)
  Receive Date: 20080226
  Receipt Date: 20080213
  Transmission Date: 20080703
  Serious: Yes (Other)
  Sender: FDA-Public Use
  Company Number: 8029873

PATIENT
  Age: 32 Year
  Sex: Male

DRUGS (2)
  1. KEPPRA [Suspect]
     Indication: CONVULSION
     Dates: start: 20040101
  2. RONDEC  /00100301/ [Suspect]
     Indication: NASOPHARYNGITIS
     Dates: start: 20080201

REACTIONS (2)
  - NASOPHARYNGITIS [None]
  - STEVENS-JOHNSON SYNDROME [None]
